FAERS Safety Report 23796611 (Version 1)
Quarter: 2024Q2

REPORT INFORMATION
  Report Type: Spontaneous
  Country: US (occurrence: US)
  Receive Date: 20240430
  Receipt Date: 20240430
  Transmission Date: 20240716
  Serious: Yes (Other)
  Sender: FDA-Public Use
  Company Number: US-NOVOPROD-1208891

PATIENT
  Age: 65 Year
  Sex: Female
  Weight: 179 kg

DRUGS (1)
  1. OZEMPIC [Suspect]
     Active Substance: SEMAGLUTIDE
     Indication: Glucose tolerance impaired
     Dosage: ONCE WEEKLY
     Route: 058

REACTIONS (5)
  - High frequency ablation [Unknown]
  - Dyspnoea [Unknown]
  - Weight increased [Unknown]
  - Intervertebral disc degeneration [Unknown]
  - Product use in unapproved indication [Unknown]

NARRATIVE: CASE EVENT DATE: 20240101
